FAERS Safety Report 8512402-2 (Version None)
Quarter: 2012Q3

REPORT INFORMATION
  Report Type: 
  Country: None (occurrence: None)
  Receive Date: 20120716
  Receipt Date: 20120712
  Transmission Date: 20120928
  Serious: Yes (Other)
  Sender: FDA-Public Use
  Company Number: BE-ROCHE-779451

PATIENT
  Sex: Male

DRUGS (6)
  1. PAROXETINE [Concomitant]
     Indication: DEPRESSION
     Route: 048
  2. GOLIMUMAB [Suspect]
     Indication: MUSCULOSKELETAL PAIN
     Route: 058
     Dates: start: 20110405, end: 20110518
  3. COPEGUS [Suspect]
     Indication: HEPATITIS C
     Route: 048
     Dates: start: 20100512, end: 20110513
  4. VITAMIN B6 [Concomitant]
     Indication: ANTIBIOTIC PROPHYLAXIS
     Route: 048
  5. PEGASYS [Suspect]
     Indication: HEPATITIS C
     Route: 058
     Dates: start: 20100512, end: 20110506
  6. ISONIAZID [Concomitant]
     Indication: ANTIBIOTIC PROPHYLAXIS
     Route: 048
     Dates: start: 20110301, end: 20110518

REACTIONS (2)
  - ALCOHOLISM [None]
  - THROMBOCYTOPENIA [None]
